FAERS Safety Report 5622903-2 (Version None)
Quarter: 2008Q1

REPORT INFORMATION
  Report Type: 
  Country: None (occurrence: None)
  Receive Date: 20080212
  Receipt Date: 20080131
  Transmission Date: 20080703
  Serious: No
  Sender: FDA-Public Use
  Company Number: US-ELI_LILLY_AND_COMPANY-US200705003886

PATIENT
  Sex: Female

DRUGS (2)
  1. FORTEO [Suspect]
     Indication: BONE DISORDER
     Dosage: UNK, UNK
     Dates: start: 20051001, end: 20070101
  2. COUMADIN [Concomitant]

REACTIONS (4)
  - ASTHENIA [None]
  - MALAISE [None]
  - MUSCLE TWITCHING [None]
  - MUSCULAR WEAKNESS [None]
